FAERS Safety Report 6573090-8 (Version None)
Quarter: 2010Q1

REPORT INFORMATION
  Report Type: 
  Country: None (occurrence: None)
  Receive Date: 20100208
  Receipt Date: 20100203
  Transmission Date: 20100710
  Serious: Yes (Hospitalization, Other)
  Sender: FDA-Public Use
  Company Number: US-ASTRAZENECA-2009UW04220

PATIENT
  Age: 12468 Day
  Sex: Male
  Weight: 77.1 kg

DRUGS (11)
  1. SEROQUEL [Suspect]
     Indication: AUTISM
     Dosage: 200 MG TO 300 MG
     Route: 048
     Dates: start: 20040101, end: 20080201
  2. PHENYTOIN SODIUM [Concomitant]
     Dates: start: 20071021
  3. RISPERDAL [Concomitant]
     Indication: AUTISM
     Dosage: 0.5 TO 2 MG
     Dates: start: 20000801, end: 20070101
  4. ABILIFY [Concomitant]
     Dosage: 5 TO 10 MG
     Dates: start: 20080201, end: 20080501
  5. BENZTROPINE MESYLATE [Concomitant]
     Dates: start: 20070701, end: 20070801
  6. LITHIUM CARBONATE [Concomitant]
     Dates: start: 20070801
  7. LORAZEPAM [Concomitant]
     Dates: start: 20071001
  8. CLONAZEPAM [Concomitant]
     Dates: start: 20080201, end: 20080401
  9. ROPINIROLE [Concomitant]
     Indication: DIABETIC NEPHROPATHY
  10. LIPITOR [Concomitant]
     Indication: BLOOD CHOLESTEROL INCREASED
  11. LIPITOR [Concomitant]
     Indication: HYPERLIPIDAEMIA

REACTIONS (7)
  - BLOOD CHOLESTEROL INCREASED [None]
  - CONVULSION [None]
  - DIABETIC NEUROPATHY [None]
  - DYSLIPIDAEMIA [None]
  - HYPERLIPIDAEMIA [None]
  - OBESITY [None]
  - TYPE 2 DIABETES MELLITUS [None]
